FAERS Safety Report 9840759 (Version 1)
Quarter: 2013Q4

REPORT INFORMATION
  Report Type: Spontaneous
  Country: JP (occurrence: None)
  Receive Date: 20131211
  Receipt Date: 20131211
  Transmission Date: 20140711
  Serious: Yes (Hospitalization)
  Sender: FDA-Public Use
  Company Number: ALL1-2013-01522

PATIENT
  Age: 80 Year
  Sex: Female

DRUGS (6)
  1. FOSRENOL [Suspect]
     Indication: HYPERPHOSPHATAEMIA
     Dosage: 750 MG, OTHER (TOTAL DAILY DOSE), ORAL
     Route: 048
     Dates: start: 20100206, end: 20100226
  2. HALCION (TRIAZOLAM) [Concomitant]
  3. HOKUNALIN /00654901/ (TULOBUTEROL) [Concomitant]
  4. BLOPRESS (CANDESARTAN CILEXETIL) [Concomitant]
  5. ALLEGRA [Concomitant]
  6. NORVASC (AMLODIPINE BESILATE) [Concomitant]

REACTIONS (2)
  - Nausea [None]
  - Vomiting [None]
